FAERS Safety Report 12365197 (Version 1)
Quarter: 2016Q2

REPORT INFORMATION
  Report Type: Report from Study
  Country: US (occurrence: US)
  Receive Date: 20160513
  Receipt Date: 20160513
  Transmission Date: 20160815
  Serious: Yes (Death, Other)
  Sender: FDA-Public Use
  Company Number: US-ROCHE-1752339

PATIENT

DRUGS (32)
  1. NELFINAVIR [Suspect]
     Active Substance: NELFINAVIR
     Indication: PRODUCT USED FOR UNKNOWN INDICATION
     Route: 064
  2. LAMIVUDINE. [Suspect]
     Active Substance: LAMIVUDINE
     Indication: PRODUCT USED FOR UNKNOWN INDICATION
     Route: 064
  3. EFAVIRENZ [Suspect]
     Active Substance: EFAVIRENZ
     Indication: PRODUCT USED FOR UNKNOWN INDICATION
     Route: 064
  4. STAVUDINE (D4T) [Suspect]
     Active Substance: STAVUDINE
     Indication: PRODUCT USED FOR UNKNOWN INDICATION
     Route: 064
  5. LAMIVUDINE. [Suspect]
     Active Substance: LAMIVUDINE
     Route: 065
  6. ABACAVIR SULFATE. [Suspect]
     Active Substance: ABACAVIR SULFATE
     Route: 065
  7. TENOFOVIR [Suspect]
     Active Substance: TENOFOVIR
     Indication: PRODUCT USED FOR UNKNOWN INDICATION
     Route: 064
  8. STAVUDINE (D4T) [Suspect]
     Active Substance: STAVUDINE
     Route: 065
  9. DELAVIRDINE [Suspect]
     Active Substance: DELAVIRDINE
     Indication: PRODUCT USED FOR UNKNOWN INDICATION
     Route: 064
  10. DELAVIRDINE [Suspect]
     Active Substance: DELAVIRDINE
     Route: 065
  11. ATAZANAVIR [Suspect]
     Active Substance: ATAZANAVIR
     Indication: PRODUCT USED FOR UNKNOWN INDICATION
     Route: 064
  12. EFAVIRENZ [Suspect]
     Active Substance: EFAVIRENZ
     Route: 065
  13. DIDANOSINE. [Suspect]
     Active Substance: DIDANOSINE
     Indication: PRODUCT USED FOR UNKNOWN INDICATION
     Route: 064
  14. ZIDOVUDINE. [Suspect]
     Active Substance: ZIDOVUDINE
     Route: 065
  15. LOPINAVIR [Suspect]
     Active Substance: LOPINAVIR
     Indication: PRODUCT USED FOR UNKNOWN INDICATION
     Route: 064
  16. NEVIRAPINE. [Suspect]
     Active Substance: NEVIRAPINE
     Route: 065
  17. SAQUINAVIR [Suspect]
     Active Substance: SAQUINAVIR
     Route: 065
  18. ATAZANAVIR [Suspect]
     Active Substance: ATAZANAVIR
     Route: 065
  19. EMTRICITABINE [Suspect]
     Active Substance: EMTRICITABINE
     Indication: PRODUCT USED FOR UNKNOWN INDICATION
     Route: 064
  20. EMTRICITABINE [Suspect]
     Active Substance: EMTRICITABINE
     Route: 065
  21. NEVIRAPINE. [Suspect]
     Active Substance: NEVIRAPINE
     Indication: PRODUCT USED FOR UNKNOWN INDICATION
     Route: 064
  22. TENOFOVIR [Suspect]
     Active Substance: TENOFOVIR
     Route: 065
  23. SAQUINAVIR [Suspect]
     Active Substance: SAQUINAVIR
     Indication: PRODUCT USED FOR UNKNOWN INDICATION
     Route: 064
  24. ZIDOVUDINE. [Suspect]
     Active Substance: ZIDOVUDINE
     Indication: PRODUCT USED FOR UNKNOWN INDICATION
     Route: 064
  25. LOPINAVIR [Suspect]
     Active Substance: LOPINAVIR
     Route: 065
  26. RITONAVIR. [Suspect]
     Active Substance: RITONAVIR
     Route: 065
  27. INDINAVIR [Suspect]
     Active Substance: INDINAVIR
     Indication: PRODUCT USED FOR UNKNOWN INDICATION
     Route: 064
  28. INDINAVIR [Suspect]
     Active Substance: INDINAVIR
     Route: 065
  29. ABACAVIR SULFATE. [Suspect]
     Active Substance: ABACAVIR SULFATE
     Indication: PRODUCT USED FOR UNKNOWN INDICATION
     Route: 064
  30. DIDANOSINE. [Suspect]
     Active Substance: DIDANOSINE
     Route: 065
  31. NELFINAVIR [Suspect]
     Active Substance: NELFINAVIR
     Route: 065
  32. RITONAVIR. [Suspect]
     Active Substance: RITONAVIR
     Indication: PRODUCT USED FOR UNKNOWN INDICATION
     Route: 064

REACTIONS (9)
  - Small for dates baby [Unknown]
  - Foetal exposure during pregnancy [Unknown]
  - Alanine aminotransferase increased [Unknown]
  - Blood bilirubin increased [Unknown]
  - Aspartate aminotransferase increased [Unknown]
  - Thrombocytopenia [Unknown]
  - Sepsis [Fatal]
  - Neutropenia [Unknown]
  - Anaemia [Unknown]
